FAERS Safety Report 9606940 (Version 3)
Quarter: 2013Q4

REPORT INFORMATION
  Report Type: Spontaneous
  Country: US (occurrence: US)
  Receive Date: 20131008
  Receipt Date: 20131120
  Transmission Date: 20140711
  Serious: Yes (Other)
  Sender: FDA-Public Use
  Company Number: US-RB-059128-13

PATIENT
  Age: 27 Year
  Sex: Female

DRUGS (3)
  1. SUBOXONE FILM [Suspect]
     Indication: PRODUCT USED FOR UNKNOWN INDICATION
     Dosage: SUBOXONE FILM; UNKNOWN DOSING DETAILS
     Route: 065
     Dates: start: 2011
  2. SUBUTEX [Suspect]
     Indication: PRODUCT USED FOR UNKNOWN INDICATION
     Dosage: UNKNOWN DOSING DETAILS
     Route: 065
  3. TOBACCO [Suspect]
     Indication: PRODUCT USED FOR UNKNOWN INDICATION
     Dosage: ONE PACK OF CIGARETTES DAILY
     Route: 055

REACTIONS (4)
  - Substance abuse [Recovered/Resolved]
  - Maternal exposure during pregnancy [Recovered/Resolved]
  - Drug withdrawal syndrome [Unknown]
  - Abortion spontaneous [Recovered/Resolved]
